FAERS Safety Report 4780077-4 (Version None)
Quarter: 2005Q3

REPORT INFORMATION
  Report Type: 
  Country: None (occurrence: None)
  Receive Date: 20050927
  Receipt Date: 20050915
  Transmission Date: 20060218
  Serious: Yes (Hospitalization)
  Sender: FDA-Public Use
  Company Number: JP-MERCK-0509USA03078

PATIENT
  Age: 75 Year
  Sex: Male

DRUGS (7)
  1. PEPCID [Suspect]
     Route: 048
  2. CLENBUTEROL HYDROCHLORIDE [Concomitant]
     Route: 065
  3. CLARITHROMYCIN [Concomitant]
     Route: 065
  4. PREDNISOLONE [Concomitant]
     Route: 065
  5. THEOPHYLLINE [Concomitant]
     Route: 065
  6. CANDESARTAN CILEXETIL [Concomitant]
     Route: 065
  7. NIFEDIPINE [Concomitant]
     Route: 065

REACTIONS (7)
  - ENTERITIS [None]
  - INTESTINAL GANGRENE [None]
  - INTESTINAL ISCHAEMIA [None]
  - PERITONITIS [None]
  - SEPTIC SHOCK [None]
  - URINE OUTPUT DECREASED [None]
  - VASOSPASM [None]
